FAERS Safety Report 23375255 (Version 1)
Quarter: 2024Q1

REPORT INFORMATION
  Report Type: Report from Study
  Country: EG (occurrence: EG)
  Receive Date: 20240106
  Receipt Date: 20240106
  Transmission Date: 20240410
  Serious: Yes (Disabling)
  Sender: FDA-Public Use
  Company Number: EG-002147023-NVSC2023EG237584

PATIENT
  Age: 38 Year
  Sex: Female

DRUGS (8)
  1. MAYZENT [Suspect]
     Active Substance: SIPONIMOD
     Indication: Multiple sclerosis
     Dosage: HALF TABLET PER DAY, QD (6 MONTHS AGO)
     Route: 048
     Dates: start: 202301
  2. MAYZENT [Suspect]
     Active Substance: SIPONIMOD
     Dosage: ONE TABLET PER DAY, QD (6 MONTHS AGO)
     Route: 048
  3. GILENYA [Suspect]
     Active Substance: FINGOLIMOD HYDROCHLORIDE
     Indication: Product used for unknown indication
     Dosage: UNK
     Route: 048
  4. LUSTRAL [Concomitant]
     Active Substance: SERTRALINE HYDROCHLORIDE
     Indication: Depression
     Dosage: 1 TIME PER DAY
     Route: 065
     Dates: start: 2022
  5. .ALPHA.-LIPOIC ACID [Concomitant]
     Active Substance: .ALPHA.-LIPOIC ACID
     Indication: Vitamin supplementation
     Dosage: 600 MG, BID
     Route: 065
     Dates: start: 2022
  6. PK-MERZ [Concomitant]
     Active Substance: AMANTADINE
     Indication: Tremor
     Dosage: 2 TIMES PER DAY
     Route: 065
     Dates: start: 2022
  7. OMEGA 3 [Concomitant]
     Active Substance: CAPSAICIN
     Indication: Vitamin supplementation
     Dosage: 1 TIME PER DAY
     Route: 065
     Dates: start: 2022
  8. GAPTIN [Concomitant]
     Indication: Hypoaesthesia
     Dosage: 2 TIMES PER DAY
     Route: 065
     Dates: start: 2022

REACTIONS (8)
  - Vision blurred [Not Recovered/Not Resolved]
  - Fatigue [Unknown]
  - COVID-19 [Unknown]
  - Drug ineffective [Unknown]
  - Limb discomfort [Unknown]
  - Wrong technique in product usage process [Unknown]
  - Product dispensing issue [Unknown]
  - Product use issue [Unknown]

NARRATIVE: CASE EVENT DATE: 20230101
